FAERS Safety Report 26111268 (Version 1)
Quarter: 2025Q4

REPORT INFORMATION
  Report Type: Spontaneous
  Country: EU (occurrence: EU)
  Receive Date: 20251202
  Receipt Date: 20251202
  Transmission Date: 20260117
  Serious: Yes (Other)
  Sender: SAMSUNG BIOEPIS
  Company Number: EU-SAMSUNG BIOEPIS-SB-2025-39000

PATIENT
  Age: 34 Year
  Sex: Male

DRUGS (1)
  1. INFLIXIMAB [Suspect]
     Active Substance: INFLIXIMAB
     Indication: Colitis ulcerative
     Dosage: 0,2 WEEKS DOUBLING THE DOSE STARTING AT WEEK 6
     Route: 042
     Dates: start: 202408

REACTIONS (5)
  - Generalised oedema [Unknown]
  - Colorectal adenoma [Unknown]
  - Hypoalbuminaemia [Unknown]
  - Microcytic anaemia [Unknown]
  - Therapeutic product effect incomplete [Unknown]
